FAERS Safety Report 14308074 (Version 2)
Quarter: 2018Q4

REPORT INFORMATION
  Report Type: Spontaneous
  Country: US (occurrence: US)
  Receive Date: 20171220
  Receipt Date: 20181024
  Transmission Date: 20190204
  Serious: Yes (Hospitalization, Other)
  Sender: FDA-Public Use
  Company Number: US-WEST-WARD PHARMACEUTICALS CORP.-US-H14001-17-04958

PATIENT
  Age: 44 Year
  Sex: Male

DRUGS (6)
  1. PREDNISONE. [Suspect]
     Active Substance: PREDNISONE
     Route: 065
  2. MYCOPHENOLATE MOFETIL. [Suspect]
     Active Substance: MYCOPHENOLATE MOFETIL
     Route: 065
  3. PREDNISONE. [Suspect]
     Active Substance: PREDNISONE
     Indication: DERMATITIS CONTACT
     Dosage: 40 TO 60MG
     Route: 048
  4. PREDNISONE. [Suspect]
     Active Substance: PREDNISONE
     Dosage: 40 TO 60MG
     Route: 065
  5. PREDNISONE. [Suspect]
     Active Substance: PREDNISONE
     Route: 065
  6. MYCOPHENOLATE MOFETIL. [Suspect]
     Active Substance: MYCOPHENOLATE MOFETIL
     Indication: DERMATITIS CONTACT
     Dosage: TITRATED UP TO 1500MG TWICE A DAY
     Route: 065

REACTIONS (11)
  - Off label use [Recovered/Resolved]
  - Lymphopenia [Unknown]
  - Cellulitis [Recovered/Resolved]
  - Weight increased [Unknown]
  - Depression [Unknown]
  - Pneumonia [Recovered/Resolved]
  - Molluscum contagiosum [Recovered/Resolved]
  - Spinal fracture [Unknown]
  - Secondary immunodeficiency [Unknown]
  - Cataract [Unknown]
  - Osteoporosis [Unknown]
